FAERS Safety Report 18848050 (Version 1)
Quarter: 2021Q1

REPORT INFORMATION
  Report Type: Spontaneous
  Country: CN (occurrence: CN)
  Receive Date: 20210204
  Receipt Date: 20210204
  Transmission Date: 20210419
  Serious: Yes (Death, Other)
  Sender: FDA-Public Use
  Company Number: CN-ASTRAZENECA-2021A007157

PATIENT
  Age: 65 Year
  Sex: Male

DRUGS (4)
  1. ERLOTINIB [Concomitant]
     Active Substance: ERLOTINIB
     Dates: start: 201608, end: 201810
  2. OSIMERTINIB. [Suspect]
     Active Substance: OSIMERTINIB
     Indication: LUNG ADENOCARCINOMA
     Route: 048
     Dates: start: 201810, end: 201906
  3. GEFITINIB. [Suspect]
     Active Substance: GEFITINIB
     Indication: LUNG ADENOCARCINOMA
     Route: 048
     Dates: start: 201904, end: 201906
  4. GEFITINIB. [Suspect]
     Active Substance: GEFITINIB
     Indication: LUNG ADENOCARCINOMA
     Route: 048
     Dates: start: 201405, end: 201608

REACTIONS (2)
  - Interstitial lung disease [Fatal]
  - Product administration error [Recovered/Resolved]
